FAERS Safety Report 9952505 (Version 1)
Quarter: 2014Q1

REPORT INFORMATION
  Report Type: Report from Study
  Country: US (occurrence: US)
  Receive Date: 20140304
  Receipt Date: 20140304
  Transmission Date: 20141002
  Serious: No
  Sender: FDA-Public Use
  Company Number: US-ABBVIE-13P-163-1072006-00

PATIENT
  Age: 69 Year
  Sex: Female
  Weight: 52.21 kg

DRUGS (1)
  1. HUMIRA [Suspect]
     Indication: CROHN^S DISEASE
     Dosage: 160 MG DAILY
     Dates: start: 20130403, end: 20130403

REACTIONS (2)
  - Injection site pain [Not Recovered/Not Resolved]
  - Abdominal pain [Not Recovered/Not Resolved]
